FAERS Safety Report 19918819 (Version 1)
Quarter: 2021Q4

REPORT INFORMATION
  Report Type: Spontaneous
  Country: US (occurrence: US)
  Receive Date: 20211005
  Receipt Date: 20211005
  Transmission Date: 20220304
  Serious: Yes (Other)
  Sender: FDA-Public Use
  Company Number: US-MLMSERVICE-20210922-3121181-1

PATIENT
  Age: 22 Year
  Sex: Female

DRUGS (3)
  1. CLONAZEPAM [Suspect]
     Active Substance: CLONAZEPAM
     Indication: COVID-19
  2. METHYLPREDNISOLONE [Suspect]
     Active Substance: METHYLPREDNISOLONE
     Indication: COVID-19
     Dosage: HIGH DOSE
     Route: 042
  3. IMMUNOGLOBULINS [Concomitant]
     Indication: COVID-19
     Route: 042

REACTIONS (2)
  - Bradycardia [Unknown]
  - Off label use [Unknown]
